FAERS Safety Report 5940744-3 (Version None)
Quarter: 2008Q4

REPORT INFORMATION
  Report Type: 
  Country: None (occurrence: None)
  Receive Date: 20081103
  Receipt Date: 20081103
  Transmission Date: 20090506
  Serious: Yes (Hospitalization)
  Sender: FDA-Public Use
  Company Number: None

PATIENT
  Age: 59 Year
  Sex: Male
  Weight: 101.7 kg

DRUGS (1)
  1. IOHEXOL [Suspect]
     Indication: SPINAL MYELOGRAM
     Dosage: 12.5 ML ONCE OTHER
     Route: 050
     Dates: start: 20081017, end: 20081017

REACTIONS (1)
  - MENINGITIS CHEMICAL [None]
